FAERS Safety Report 8017440-4 (Version None)
Quarter: 2012Q1

REPORT INFORMATION
  Report Type: 
  Country: None (occurrence: None)
  Receive Date: 20120103
  Receipt Date: 20111220
  Transmission Date: 20120608
  Serious: Yes (Hospitalization, Other)
  Sender: FDA-Public Use
  Company Number: CZ-AMGEN-CZESP2011053773

PATIENT
  Sex: Female

DRUGS (9)
  1. CALCICHEW-D3 [Concomitant]
     Dosage: UNK, 1X/DAY
  2. ENBREL [Suspect]
     Indication: PSORIATIC ARTHROPATHY
     Dosage: 50 MG, WEEKLY
     Route: 058
     Dates: start: 20070514
  3. MICARDIS HCT [Concomitant]
     Dosage: UNK, 1X/DAY
  4. BONVIVA                            /01304701/ [Concomitant]
     Dosage: UNK
  5. MEDROL [Concomitant]
     Dosage: 4 MG, EVERY OTHER DAY
  6. ATORVASTATIN [Concomitant]
     Dosage: UNK
  7. MELOXICAM [Concomitant]
     Dosage: 15 MG, 1X/DAY
  8. BETAXOLOL [Concomitant]
     Dosage: 5 MG, 1X/DAY
  9. INDOMETHACIN [Concomitant]
     Dosage: UNK

REACTIONS (8)
  - LOSS OF CONSCIOUSNESS [None]
  - SHOCK [None]
  - DIARRHOEA [None]
  - MENINGOCOCCAL SEPSIS [None]
  - SEPTIC SHOCK [None]
  - VOMITING [None]
  - PYREXIA [None]
  - LEUKOPENIA [None]
